FAERS Safety Report 7065330-6 (Version None)
Quarter: 2010Q4

REPORT INFORMATION
  Report Type: 
  Country: None (occurrence: None)
  Receive Date: 20101027
  Receipt Date: 20101013
  Transmission Date: 20110411
  Serious: Yes (Other)
  Sender: FDA-Public Use
  Company Number: US-SANOFI-AVENTIS-2010SA023392

PATIENT
  Sex: Male

DRUGS (2)
  1. PLAVIX [Suspect]
     Route: 048
     Dates: start: 20000101
  2. TOPROL-XL [Suspect]
     Route: 065

REACTIONS (7)
  - ATRIAL FIBRILLATION [None]
  - HEART RATE INCREASED [None]
  - HYPERTENSION [None]
  - MENTAL DISORDER [None]
  - NERVOUSNESS [None]
  - PALPITATIONS [None]
  - TACHYCARDIA [None]
